APPROVED DRUG PRODUCT: PANTOPRAZOLE SODIUM
Active Ingredient: PANTOPRAZOLE SODIUM
Strength: EQ 20MG BASE
Dosage Form/Route: TABLET, DELAYED RELEASE;ORAL
Application: A090901 | Product #001
Applicant: JUBILANT GENERICS LTD
Approved: Aug 30, 2011 | RLD: No | RS: No | Type: DISCN